FAERS Safety Report 6312480-5 (Version None)
Quarter: 2009Q3

REPORT INFORMATION
  Report Type: 
  Country: None (occurrence: None)
  Receive Date: 20090813
  Receipt Date: 20090728
  Transmission Date: 20100115
  Serious: Yes (Other)
  Sender: FDA-Public Use
  Company Number: 20090343

PATIENT
  Age: 32 Year
  Sex: Female

DRUGS (1)
  1. VENOFER [Suspect]
     Indication: IRON DEFICIENCY ANAEMIA
     Dosage: 200 MG FOR 8 DOSES; INTRAVENOUS
     Route: 042

REACTIONS (6)
  - HAEMOSIDEROSIS [None]
  - HOT FLUSH [None]
  - HYPOKINESIA [None]
  - NAUSEA [None]
  - OVERDOSE [None]
  - VOMITING [None]
